FAERS Safety Report 5076993-9 (Version None)
Quarter: 2006Q3

REPORT INFORMATION
  Report Type: 
  Country: None (occurrence: None)
  Receive Date: 20060810
  Receipt Date: 20060428
  Transmission Date: 20061208
  Serious: Yes (Other)
  Sender: FDA-Public Use
  Company Number: 2006CG00763

PATIENT
  Age: 658 Month
  Sex: Female

DRUGS (6)
  1. CRESTOR [Suspect]
     Indication: HYPERCHOLESTEROLAEMIA
     Route: 048
     Dates: start: 20051221, end: 20060131
  2. SERESTA [Concomitant]
     Dates: end: 20060131
  3. MEPRONIZINE [Concomitant]
     Dates: end: 20060131
  4. MOTILIUM [Concomitant]
     Indication: NAUSEA
     Dates: start: 20051201, end: 20060131
  5. LAMALINE [Concomitant]
     Indication: OSTEOARTHRITIS
     Dates: end: 20060131
  6. ZELITREX [Concomitant]
     Indication: ANTIVIRAL PROPHYLAXIS
     Dates: end: 20060131

REACTIONS (25)
  - BLOOD CREATINE PHOSPHOKINASE INCREASED [None]
  - BLOOD LACTATE DEHYDROGENASE INCREASED [None]
  - CONSTIPATION [None]
  - CYTOMEGALOVIRUS ANTIBODY POSITIVE [None]
  - DIARRHOEA [None]
  - EYELID OEDEMA [None]
  - FALL [None]
  - FREQUENT BOWEL MOVEMENTS [None]
  - HEPATIC CYST [None]
  - HERPES SIMPLEX SEROLOGY POSITIVE [None]
  - HYPERHIDROSIS [None]
  - LIMB DISCOMFORT [None]
  - MUSCLE ATROPHY [None]
  - MUSCLE ENZYME INCREASED [None]
  - MYALGIA [None]
  - MYOGLOBIN BLOOD INCREASED [None]
  - OCULAR HYPERAEMIA [None]
  - ORAL MUCOSA EROSION [None]
  - PAIN IN EXTREMITY [None]
  - PERIPHERAL VASCULAR DISORDER [None]
  - SKELETAL INJURY [None]
  - SKIN LESION [None]
  - TRANSAMINASES INCREASED [None]
  - VARICOSE VEIN [None]
  - WEIGHT DECREASED [None]
